FAERS Safety Report 7494497 (Version 11)
Quarter: 2014Q1

REPORT INFORMATION
  Report Type: Spontaneous
  Country: US (occurrence: US)
  Receive Date: 20100722
  Receipt Date: 20140328
  Transmission Date: 20141002
  Serious: Yes (Death, Other)
  Sender: FDA-Public Use
  Company Number: PHEH2010US03504

PATIENT
  Age: 66 Year
  Sex: Female

DRUGS (29)
  1. ZOMETA [Suspect]
     Indication: BREAST CANCER METASTATIC
     Dates: start: 2007
  2. WARFARIN [Concomitant]
  3. AMOXYCILLIN [Concomitant]
  4. COUMADIN ^BOOTS^ [Concomitant]
  5. LOVENOX [Concomitant]
  6. ESTRADIOL [Concomitant]
  7. VICODIN [Concomitant]
  8. HERCEPTIN [Concomitant]
  9. LETROZOLE [Concomitant]
  10. OMEPRAZOLE [Concomitant]
  11. TAMOXIFEN [Concomitant]
  12. PAXIL [Concomitant]
  13. CLINDAMYCIN [Concomitant]
     Dosage: 300 MG, TID
     Route: 048
  14. TYLENOL [Concomitant]
  15. FEMARA [Concomitant]
  16. PEN-VEE-K [Concomitant]
     Dosage: 500 MG, QID
  17. FLAGYL [Concomitant]
     Dosage: 500 MG, TID
  18. PERIDEX [Concomitant]
  19. CELEXA [Concomitant]
     Dosage: 10 MG, QHS
     Route: 048
  20. DOCUSATE [Concomitant]
     Dosage: 200 MG, BID
  21. PSYLLIUM [Concomitant]
     Dosage: 1 DF, BID
  22. DIPHENHYDRAMINE [Concomitant]
  23. DROPERIDOL [Concomitant]
  24. METOCLOPRAMIDE [Concomitant]
  25. NALOXONE [Concomitant]
  26. PROMETHAZINE [Concomitant]
  27. SENOKOT [Concomitant]
  28. CEFAZOLIN [Concomitant]
  29. ENOXAPARIN [Concomitant]
     Dosage: 60 MG, BID

REACTIONS (56)
  - Death [Fatal]
  - Osteonecrosis of jaw [Unknown]
  - Injury [Unknown]
  - Pain [Unknown]
  - Emotional distress [Unknown]
  - Exposed bone in jaw [Unknown]
  - Swelling face [Unknown]
  - Jaw fracture [Unknown]
  - Erythema [Unknown]
  - Deformity [Unknown]
  - Pain in jaw [Unknown]
  - Tooth loss [Unknown]
  - Primary sequestrum [Unknown]
  - Bacterial disease carrier [Unknown]
  - Abscess [Unknown]
  - Anxiety [Unknown]
  - Facial pain [Unknown]
  - Pathological fracture [Unknown]
  - Wound [Unknown]
  - Osteosclerosis [Unknown]
  - Rib fracture [Unknown]
  - Metastases to bone [Unknown]
  - Osteomyelitis [Unknown]
  - Pneumonia [Unknown]
  - Hyperlipidaemia [Unknown]
  - Metastases to liver [Unknown]
  - Metastases to spleen [Unknown]
  - Metastases to pleura [Unknown]
  - Chest pain [Unknown]
  - Haemoptysis [Unknown]
  - Impetigo [Unknown]
  - Facial nerve disorder [Unknown]
  - Gingival inflammation [Unknown]
  - Excessive granulation tissue [Unknown]
  - Bone swelling [Unknown]
  - Dyspnoea exertional [Unknown]
  - Muscle spasms [Unknown]
  - Nasal congestion [Unknown]
  - Depression [Unknown]
  - Thyroid disorder [Unknown]
  - Paraesthesia oral [Unknown]
  - Arthritis [Unknown]
  - Hepatomegaly [Unknown]
  - Soft tissue disorder [Unknown]
  - Sinus disorder [Unknown]
  - Anosmia [Unknown]
  - Vaginal haemorrhage [Unknown]
  - Diarrhoea [Unknown]
  - Pneumothorax [Unknown]
  - Infarction [Unknown]
  - Ataxia [Unknown]
  - Metastases to abdominal cavity [Unknown]
  - Sinusitis [Unknown]
  - Brain neoplasm malignant [Unknown]
  - Second primary malignancy [Unknown]
  - Malignant neoplasm of spinal cord [Unknown]
